FAERS Safety Report 12954103 (Version 1)
Quarter: 2016Q4

REPORT INFORMATION
  Report Type: Report from Study
  Country: GB (occurrence: GB)
  Receive Date: 20161118
  Receipt Date: 20161118
  Transmission Date: 20170207
  Serious: Yes (Other)
  Sender: FDA-Public Use
  Company Number: GB-ROCHE-1854211

PATIENT
  Age: 79 Year
  Sex: Male
  Weight: 80.6 kg

DRUGS (3)
  1. BORTEZOMIB [Suspect]
     Active Substance: BORTEZOMIB
     Indication: WALDENSTROM^S MACROGLOBULINAEMIA
     Dosage: DATE OF LAST DOSE PRIOR TO AE ONSET: 05/FEB/2016
     Route: 058
     Dates: start: 20150904
  2. RITUXIMAB [Suspect]
     Active Substance: RITUXIMAB
     Indication: WALDENSTROM^S MACROGLOBULINAEMIA
     Dosage: DATE OF LAST DOSE PRIOR TO AE ONSET: 14/JAN/2016
     Route: 042
     Dates: start: 20151002
  3. CYCLOPHOSPHAMIDE. [Suspect]
     Active Substance: CYCLOPHOSPHAMIDE
     Indication: WALDENSTROM^S MACROGLOBULINAEMIA
     Route: 048
     Dates: start: 20150904

REACTIONS (1)
  - Malignant polyp [Recovered/Resolved]

NARRATIVE: CASE EVENT DATE: 20160514
